FAERS Safety Report 21028349 (Version 1)
Quarter: 2022Q2

REPORT INFORMATION
  Report Type: Spontaneous
  Country: US (occurrence: US)
  Receive Date: 20220630
  Receipt Date: 20220630
  Transmission Date: 20220721
  Serious: No
  Sender: FDA-Public Use
  Company Number: US-EIGER BIOPHARMACEUTICALS-EIG-2022-000007

PATIENT

DRUGS (1)
  1. ZOKINVY [Suspect]
     Active Substance: LONAFARNIB
     Indication: Progeria
     Dosage: 50 MG, BID, 2 CAPSULES TWICE A DAY
     Route: 065
     Dates: start: 20210312

REACTIONS (1)
  - Product dose omission issue [Unknown]
